FAERS Safety Report 23339634 (Version 1)
Quarter: 2023Q4

REPORT INFORMATION
  Report Type: Spontaneous
  Country: None (occurrence: US)
  Receive Date: 20231226
  Receipt Date: 20231226
  Transmission Date: 20240110
  Serious: Yes (Other)
  Sender: FDA-Public Use
  Company Number: US-Pharmascience Inc.-2149717

PATIENT
  Age: 6 Decade
  Sex: Male

DRUGS (6)
  1. BORTEZOMIB [Suspect]
     Active Substance: BORTEZOMIB
     Indication: Plasma cell myeloma refractory
  2. DEXAMETHASONE [Suspect]
     Active Substance: DEXAMETHASONE
  3. CISPLATIN [Suspect]
     Active Substance: CISPLATIN
  4. DOXORUBICIN HYDROCHLORIDE [Suspect]
     Active Substance: DOXORUBICIN HYDROCHLORIDE
  5. CYCLOPHOSPHAMIDE [Suspect]
     Active Substance: CYCLOPHOSPHAMIDE
  6. ETOPOSIDE [Suspect]
     Active Substance: ETOPOSIDE

REACTIONS (5)
  - Staphylococcal bacteraemia [Recovered/Resolved]
  - Condition aggravated [Recovered/Resolved]
  - Neutropenic sepsis [Not Recovered/Not Resolved]
  - Acute kidney injury [Recovered/Resolved]
  - Pancytopenia [Not Recovered/Not Resolved]
